FAERS Safety Report 5688355-1 (Version None)
Quarter: 2008Q1

REPORT INFORMATION
  Report Type: 
  Country: None (occurrence: None)
  Receive Date: 20080328
  Receipt Date: 20080328
  Transmission Date: 20080703
  Serious: Yes (Hospitalization)
  Sender: FDA-Public Use
  Company Number: None

PATIENT
  Age: 65 Year
  Sex: Male
  Weight: 65 kg

DRUGS (3)
  1. ENOXAPARIN SODIUM [Suspect]
     Indication: CARDIOVASCULAR DISORDER
     Dosage: 100MGMG BID SQ
     Route: 058
     Dates: start: 20080307, end: 20080310
  2. ENOXAPARIN SODIUM [Suspect]
     Indication: SURGERY
     Dosage: 100MGMG BID SQ
     Route: 058
     Dates: start: 20080307, end: 20080310
  3. WARFARIN SODIUM [Suspect]
     Dosage: 4MG EVERY DAY PO
     Route: 048
     Dates: start: 20080307, end: 20080310

REACTIONS (2)
  - ABDOMINAL WALL HAEMATOMA [None]
  - HAEMORRHAGE [None]
